FAERS Safety Report 6734921-1 (Version None)
Quarter: 2010Q2

REPORT INFORMATION
  Report Type: 
  Country: None (occurrence: None)
  Receive Date: 20100521
  Receipt Date: 20100512
  Transmission Date: 20101027
  Serious: No
  Sender: FDA-Public Use
  Company Number: 2009BI030491

PATIENT
  Age: 41 Year
  Sex: Male

DRUGS (1)
  1. TYSABRI [Suspect]
     Indication: MULTIPLE SCLEROSIS
     Route: 042
     Dates: start: 20090916

REACTIONS (6)
  - BALANCE DISORDER [None]
  - DECREASED APPETITE [None]
  - FATIGUE [None]
  - INFUSION SITE PAIN [None]
  - IRRITABILITY [None]
  - MULTIPLE SCLEROSIS RELAPSE [None]
